FAERS Safety Report 22536174 (Version 1)
Quarter: 2023Q2

REPORT INFORMATION
  Report Type: Spontaneous
  Country: US (occurrence: None)
  Receive Date: 20230607
  Receipt Date: 20230607
  Transmission Date: 20230721
  Serious: No
  Sender: FDA-Public Use
  Company Number: None

PATIENT
  Sex: Male

DRUGS (28)
  1. ABIRATERONE [Suspect]
     Active Substance: ABIRATERONE
     Indication: Prostate cancer
     Dosage: OTHER QUANTITY : 4T;?FREQUENCY : DAILY;?
     Route: 048
  2. NORVASC [Concomitant]
     Active Substance: AMLODIPINE BESYLATE
  3. ELIQUIS [Concomitant]
     Active Substance: APIXABAN
  4. ATORVASTATIN [Concomitant]
     Active Substance: ATORVASTATIN
  5. CADOSEX [Concomitant]
  6. BUMEX [Concomitant]
     Active Substance: BUMETANIDE
  7. LOTRISONE [Concomitant]
     Active Substance: BETAMETHASONE DIPROPIONATE\CLOTRIMAZOLE
  8. CYANOCOBALAMIN [Concomitant]
     Active Substance: CYANOCOBALAMIN
  9. IRON [Concomitant]
     Active Substance: IRON
  10. FINASTERIDE [Concomitant]
     Active Substance: FINASTERIDE
  11. FLONASE [Concomitant]
     Active Substance: FLUTICASONE PROPIONATE
  12. GABAPENTIN [Concomitant]
     Active Substance: GABAPENTIN
  13. HYDROCHLOROTHIAZIDE [Concomitant]
     Active Substance: HYDROCHLOROTHIAZIDE
  14. HUMALOG [Concomitant]
     Active Substance: INSULIN LISPRO
  15. DEVICE [Concomitant]
     Active Substance: DEVICE
  16. VICTOZA [Concomitant]
     Active Substance: LIRAGLUTIDE
  17. MAGNESIUM [Concomitant]
     Active Substance: MAGNESIUM
  18. METFORMIN [Concomitant]
     Active Substance: METFORMIN HYDROCHLORIDE
  19. VITAMINS [Concomitant]
     Active Substance: VITAMINS
  20. NITROGLYCERIN [Concomitant]
     Active Substance: NITROGLYCERIN
  21. PANTOPRAZOLE [Concomitant]
     Active Substance: PANTOPRAZOLE
  22. POTASSIUM [Concomitant]
  23. PREDNISONE [Concomitant]
     Active Substance: PREDNISONE
  24. BETAPACE [Concomitant]
     Active Substance: SOTALOL HYDROCHLORIDE
  25. TOUJEO [Concomitant]
     Active Substance: INSULIN GLARGINE
  26. VALSARTAN [Concomitant]
     Active Substance: VALSARTAN
  27. SUCRALFATE [Concomitant]
     Active Substance: SUCRALFATE
  28. TAMSULOSIN [Concomitant]
     Active Substance: TAMSULOSIN

REACTIONS (1)
  - Malignant neoplasm progression [None]
